FAERS Safety Report 5901861-7 (Version None)
Quarter: 2008Q3

REPORT INFORMATION
  Report Type: 
  Country: None (occurrence: None)
  Receive Date: 20080929
  Receipt Date: 20080215
  Transmission Date: 20090109
  Serious: Yes (Other)
  Sender: FDA-Public Use
  Company Number: JP-BAYER-200810102BYL

PATIENT
  Age: 73 Year
  Sex: Female

DRUGS (4)
  1. FLUDARA [Suspect]
     Indication: NON-HODGKIN'S LYMPHOMA
     Dosage: TOTAL DAILY DOSE: 50 MG  UNIT DOSE: 10 MG
     Route: 048
     Dates: start: 20070810, end: 20070814
  2. FLUDARA [Suspect]
     Dosage: TOTAL DAILY DOSE: 40 MG  UNIT DOSE: 10 MG
     Route: 048
     Dates: start: 20070906, end: 20070910
  3. FLUDARA [Suspect]
     Dosage: TOTAL DAILY DOSE: 30 MG  UNIT DOSE: 10 MG
     Route: 048
     Dates: start: 20071025, end: 20071029
  4. FLUDARA [Suspect]
     Dosage: TOTAL DAILY DOSE: 30 MG  UNIT DOSE: 10 MG
     Route: 048
     Dates: start: 20071122, end: 20071126

REACTIONS (3)
  - NEUTROPHIL COUNT DECREASED [None]
  - PLATELET COUNT DECREASED [None]
  - WHITE BLOOD CELL COUNT DECREASED [None]
